FAERS Safety Report 8597733-2 (Version None)
Quarter: 2012Q3

REPORT INFORMATION
  Report Type: 
  Country: None (occurrence: None)
  Receive Date: 20120816
  Receipt Date: 20120810
  Transmission Date: 20120928
  Serious: Yes (Other)
  Sender: FDA-Public Use
  Company Number: PHHY2012BR025577

PATIENT
  Sex: Male

DRUGS (2)
  1. SANDOSTATIN LAR [Suspect]
     Indication: PITUITARY TUMOUR
     Dosage: 40 MG
  2. SANDOSTATIN LAR [Suspect]
     Dosage: 30 MG

REACTIONS (2)
  - ASTHENIA [None]
  - HEARING IMPAIRED [None]
